FAERS Safety Report 8480251 (Version 2)
Quarter: 2014Q1

REPORT INFORMATION
  Report Type: Spontaneous
  Country: US (occurrence: US)
  Receive Date: 20120328
  Receipt Date: 20140121
  Transmission Date: 20141002
  Serious: Yes (Life-Threatening, Other)
  Sender: FDA-Public Use
  Company Number: US-BAYER-2012-027474

PATIENT
  Age: 19 Year
  Sex: Female
  Weight: 72.7 kg

DRUGS (4)
  1. YAZ [Suspect]
  2. YASMIN [Suspect]
  3. OCELLA [Suspect]
  4. ZANTAC [Concomitant]
     Dosage: 300MG DAILY
     Route: 048
     Dates: start: 20100303, end: 20100317

REACTIONS (8)
  - Cholecystitis [None]
  - Cholecystitis chronic [None]
  - Injury [None]
  - Injury [None]
  - Pain [None]
  - Asthenia [None]
  - Anxiety [None]
  - Anhedonia [None]
